FAERS Safety Report 9618401 (Version 2)
Quarter: 2013Q4

REPORT INFORMATION
  Report Type: Spontaneous
  Country: US (occurrence: US)
  Receive Date: 20131014
  Receipt Date: 20131101
  Transmission Date: 20140711
  Serious: Yes (Hospitalization)
  Sender: FDA-Public Use
  Company Number: US-AMGEN-USASP2013071201

PATIENT
  Age: 81 Year
  Sex: Female

DRUGS (5)
  1. ENBREL [Suspect]
     Indication: RHEUMATOID ARTHRITIS
     Dosage: 50 MG, QWK
     Route: 065
     Dates: start: 20130611
  2. METHOTREXATE [Concomitant]
     Dosage: 10 MG, QWK
     Route: 048
     Dates: start: 201212
  3. PLAQUENIL                          /00072602/ [Concomitant]
     Dosage: 400 MG, QD
     Route: 048
  4. SULFASALAZINE [Concomitant]
     Dosage: 500 MG, QD
     Route: 048
  5. PREDNISONE [Concomitant]
     Dosage: UNK

REACTIONS (5)
  - Vertigo positional [Not Recovered/Not Resolved]
  - Vascular stenosis [Recovered/Resolved]
  - Blood pressure abnormal [Recovered/Resolved]
  - Gait disturbance [Recovered/Resolved]
  - Skin disorder [Not Recovered/Not Resolved]
